FAERS Safety Report 5197693-0 (Version None)
Quarter: 2007Q1

REPORT INFORMATION
  Report Type: 
  Country: None (occurrence: None)
  Receive Date: 20070103
  Receipt Date: 20061222
  Transmission Date: 20070707
  Serious: Yes (Hospitalization, Other)
  Sender: FDA-Public Use
  Company Number: US-PFIZER INC-2007000330

PATIENT
  Sex: Female
  Weight: 56.7 kg

DRUGS (9)
  1. DETROL LA [Suspect]
     Indication: URINARY TRACT DISORDER
  2. VESICARE [Suspect]
  3. SYNTHROID [Concomitant]
  4. ACIPHEX [Concomitant]
  5. ACTONEL [Concomitant]
  6. MAXZIDE [Concomitant]
  7. MESTINON [Concomitant]
  8. OPHTHALMOLOGICALS [Concomitant]
  9. ASPIRIN [Concomitant]

REACTIONS (3)
  - GLAUCOMA [None]
  - RASH GENERALISED [None]
  - URTICARIA GENERALISED [None]
